FAERS Safety Report 19407519 (Version 1)
Quarter: 2021Q2

REPORT INFORMATION
  Report Type: Spontaneous
  Country: NL (occurrence: NL)
  Receive Date: 20210611
  Receipt Date: 20210611
  Transmission Date: 20210717
  Serious: Yes (Other)
  Sender: FDA-Public Use
  Company Number: NL-TEVA-2021-NL-1920480

PATIENT
  Age: 61 Year
  Sex: Female
  Weight: 65 kg

DRUGS (2)
  1. CLOPIDOGREL TABLET   75MG / BRAND NAME NOT SPECIFIED [Suspect]
     Active Substance: CLOPIDOGREL BISULFATE
     Indication: HEART VALVE REPLACEMENT
     Dosage: 75 MILLIGRAM DAILY; THERAPY END DATE : ASKU
     Dates: start: 20210413
  2. FENPROCOUMON TABLET 3MG / BRAND NAME NOT SPECIFIED [Concomitant]
     Dosage: 3 MG (MILLIGRAM) , THERAPY START DATE AND END DATE : ASKU

REACTIONS (2)
  - Epistaxis [Recovering/Resolving]
  - Haemorrhage subcutaneous [Unknown]

NARRATIVE: CASE EVENT DATE: 20210422
